FAERS Safety Report 12748394 (Version 2)
Quarter: 2017Q3

REPORT INFORMATION
  Report Type: Spontaneous
  Country: US (occurrence: US)
  Receive Date: 20160915
  Receipt Date: 20170914
  Transmission Date: 20171127
  Serious: No
  Sender: FDA-Public Use
  Company Number: US-ASTELLAS-2016US034239

PATIENT
  Age: 62 Year
  Sex: Male

DRUGS (3)
  1. XTANDI [Suspect]
     Active Substance: ENZALUTAMIDE
     Route: 048
  2. XTANDI [Suspect]
     Active Substance: ENZALUTAMIDE
     Indication: PROSTATE CANCER
     Dosage: 160 MG (4 CAPSULES), ONCE DAILY
     Route: 048
     Dates: start: 20160827
  3. XTANDI [Suspect]
     Active Substance: ENZALUTAMIDE
     Route: 065
     Dates: end: 201611

REACTIONS (7)
  - Peripheral swelling [Not Recovered/Not Resolved]
  - Fatigue [Recovering/Resolving]
  - Headache [Recovering/Resolving]
  - Arthralgia [Not Recovered/Not Resolved]
  - Swelling [Not Recovered/Not Resolved]
  - Drug ineffective [Not Recovered/Not Resolved]
  - Dizziness [Recovered/Resolved]

NARRATIVE: CASE EVENT DATE: 201608
